FAERS Safety Report 18453234 (Version 1)
Quarter: 2020Q4

REPORT INFORMATION
  Report Type: Spontaneous
  Country: US (occurrence: US)
  Receive Date: 20201102
  Receipt Date: 20201102
  Transmission Date: 20210114
  Serious: Yes (Hospitalization)
  Sender: FDA-Public Use
  Company Number: None

PATIENT
  Age: 85 Year
  Sex: Male
  Weight: 90.68 kg

DRUGS (22)
  1. ACETAMINOPHEN. [Concomitant]
     Active Substance: ACETAMINOPHEN
  2. ELIQUIS [Concomitant]
     Active Substance: APIXABAN
  3. NOCO [Concomitant]
  4. KLONOPIN [Concomitant]
     Active Substance: CLONAZEPAM
  5. METOPROLOL. [Concomitant]
     Active Substance: METOPROLOL
  6. ALBUTEROL. [Concomitant]
     Active Substance: ALBUTEROL
  7. LASIX [Concomitant]
     Active Substance: FUROSEMIDE
  8. NITROGLYCERIN. [Concomitant]
     Active Substance: NITROGLYCERIN
  9. HUMALOG [Concomitant]
     Active Substance: INSULIN LISPRO
  10. LAMICTAL [Concomitant]
     Active Substance: LAMOTRIGINE
  11. HYDROXYUREA. [Suspect]
     Active Substance: HYDROXYUREA
     Indication: CHRONIC MYELOID LEUKAEMIA
     Route: 048
     Dates: start: 20201030
  12. ALDACTONE [Concomitant]
     Active Substance: SPIRONOLACTONE
  13. LIPITOR [Concomitant]
     Active Substance: ATORVASTATIN CALCIUM
  14. MIRALAX [Concomitant]
     Active Substance: POLYETHYLENE GLYCOL 3350
  15. ALLOPURINOL. [Concomitant]
     Active Substance: ALLOPURINOL
  16. LANTUS [Concomitant]
     Active Substance: INSULIN GLARGINE
  17. SYNTHROID [Concomitant]
     Active Substance: LEVOTHYROXINE SODIUM
  18. PROSCAR [Concomitant]
     Active Substance: FINASTERIDE
  19. COLCHICINE. [Concomitant]
     Active Substance: COLCHICINE
  20. FISH OIL [Concomitant]
     Active Substance: FISH OIL
  21. ISOSORBIDE. [Concomitant]
     Active Substance: ISOSORBIDE
  22. BREO ELLIPTA [Concomitant]
     Active Substance: FLUTICASONE FUROATE\VILANTEROL TRIFENATATE

REACTIONS (1)
  - Hospitalisation [None]

NARRATIVE: CASE EVENT DATE: 20201102
